FAERS Safety Report 9269737 (Version 1)
Quarter: 2013Q2

REPORT INFORMATION
  Report Type: Spontaneous
  Country: US (occurrence: US)
  Receive Date: 20130503
  Receipt Date: 20130503
  Transmission Date: 20140414
  Serious: No
  Sender: FDA-Public Use
  Company Number: US-009507513-1304USA013495

PATIENT
  Age: 22 Year
  Sex: Female

DRUGS (2)
  1. NUVARING [Suspect]
     Indication: CONTRACEPTION
     Dosage: 1 RING FOR 3 YEARS
     Route: 067
     Dates: start: 2010, end: 20130331
  2. NUVARING [Suspect]
     Dosage: 1 RING FOR 3 YEARS
     Route: 067
     Dates: start: 20130407

REACTIONS (3)
  - Hypomenorrhoea [Unknown]
  - Menstrual disorder [Unknown]
  - Menstruation delayed [Unknown]
